FAERS Safety Report 10446646 (Version 1)
Quarter: 2014Q3

REPORT INFORMATION
  Report Type: Spontaneous
  Country: ES (occurrence: ES)
  Receive Date: 20140911
  Receipt Date: 20140911
  Transmission Date: 20150326
  Serious: Yes (Other)
  Sender: FDA-Public Use
  Company Number: ES-AMGEN-ESPSP2014068748

PATIENT
  Age: 79 Year

DRUGS (3)
  1. XGEVA [Suspect]
     Active Substance: DENOSUMAB
     Indication: PRODUCT USED FOR UNKNOWN INDICATION
     Dosage: 120 MG, 1 INJECTION EVERY 28 DAYS
     Route: 065
     Dates: start: 20140721
  2. ZOLADEX                            /00732102/ [Concomitant]
     Dosage: 10.8 MG, Q3MO
     Route: 065
     Dates: start: 20130731
  3. CABAZITAXEL [Concomitant]
     Active Substance: CABAZITAXEL
     Dosage: 45 MG, Q3WK
     Route: 065
     Dates: start: 20121030

REACTIONS (1)
  - Hypocalcaemia [Recovered/Resolved]

NARRATIVE: CASE EVENT DATE: 20140818
